FAERS Safety Report 8375775-X (Version None)
Quarter: 2012Q2

REPORT INFORMATION
  Report Type: 
  Country: None (occurrence: None)
  Receive Date: 20120518
  Receipt Date: 20120518
  Transmission Date: 20120825
  Serious: Yes (Other)
  Sender: FDA-Public Use
  Company Number: None

PATIENT
  Age: 52 Year
  Sex: Female
  Weight: 62.5964 kg

DRUGS (1)
  1. ESCITALOPRAM [Suspect]
     Indication: DISTURBANCE IN ATTENTION
     Dosage: 10 MG DAILY
     Dates: start: 20120428, end: 20120517

REACTIONS (2)
  - PRODUCT SUBSTITUTION ISSUE [None]
  - ANXIETY [None]
